FAERS Safety Report 4602296-X (Version None)
Quarter: 2005Q2

REPORT INFORMATION
  Report Type: 
  Country: None (occurrence: None)
  Receive Date: 20050215
  Receipt Date: 20041021
  Transmission Date: 20051028
  Serious: Yes (Hospitalization)
  Sender: FDA-Public Use
  Company Number: 379567

PATIENT
  Sex: Female

DRUGS (2)
  1. PEGASYS [Suspect]
     Dates: start: 20040810
  2. COPEGUS [Suspect]
     Dosage: ORAL
     Route: 048
     Dates: start: 20040810

REACTIONS (6)
  - ABDOMINAL PAIN [None]
  - DEHYDRATION [None]
  - INFLUENZA LIKE ILLNESS [None]
  - INSOMNIA [None]
  - MYALGIA [None]
  - VOMITING [None]
